FAERS Safety Report 9959391 (Version 1)
Quarter: 2014Q1

REPORT INFORMATION
  Report Type: Spontaneous
  Country: US (occurrence: US)
  Receive Date: 20140305
  Receipt Date: 20140305
  Transmission Date: 20141002
  Serious: No
  Sender: FDA-Public Use
  Company Number: US-ABBVIE-13P-163-1106736-00

PATIENT
  Age: 17 Year
  Sex: Male
  Weight: 61.29 kg

DRUGS (7)
  1. HUMIRA [Suspect]
     Indication: CROHN^S DISEASE
     Route: 058
     Dates: start: 20130618, end: 20130618
  2. HUMIRA [Suspect]
  3. PREDNISONE [Concomitant]
     Indication: CROHN^S DISEASE
  4. OMEPRAZOLE [Concomitant]
     Indication: CROHN^S DISEASE
  5. MERCAPTOPURINE [Concomitant]
     Indication: CROHN^S DISEASE
  6. OSCAL [Concomitant]
     Indication: CROHN^S DISEASE
  7. IRON [Concomitant]
     Indication: CROHN^S DISEASE

REACTIONS (1)
  - Off label use [Not Recovered/Not Resolved]
